FAERS Safety Report 13596513 (Version 2)
Quarter: 2017Q2

REPORT INFORMATION
  Report Type: Report from Study
  Country: DE (occurrence: DE)
  Receive Date: 20170531
  Receipt Date: 20170620
  Transmission Date: 20170830
  Serious: Yes (Hospitalization)
  Sender: FDA-Public Use
  Company Number: PHHY2017DE077340

PATIENT
  Sex: Male

DRUGS (18)
  1. TASIGNA [Suspect]
     Active Substance: NILOTINIB
     Dosage: 600 MG, QD (600 MG/D)
     Route: 065
     Dates: start: 20170426
  2. PANTOPRAZOLE [Concomitant]
     Active Substance: PANTOPRAZOLE
     Indication: SKIN ULCER
     Dosage: 40 MG, QD
     Route: 065
     Dates: start: 20160420
  3. SIFROL [Concomitant]
     Active Substance: PRAMIPEXOLE
     Indication: RESTLESS LEGS SYNDROME
     Dosage: 50 MG, QD (50,25 MG /D)
     Route: 065
     Dates: start: 20160801
  4. LACTULOSE. [Concomitant]
     Active Substance: LACTULOSE
     Indication: CONSTIPATION PROPHYLAXIS
     Dosage: UNK UNK, PRN
     Route: 065
     Dates: start: 20170101
  5. NOVAMINSULFONE SODIUM [Concomitant]
     Active Substance: METAMIZOLE
     Indication: INFLUENZA
     Dosage: 120 DRP, QD (UP TO 120 DROPS/D)
     Route: 065
     Dates: start: 20160715
  6. ALLOPURINOL. [Concomitant]
     Active Substance: ALLOPURINOL
     Indication: HYPERURICAEMIA
     Dosage: 300 MG, QD
     Dates: start: 20160731
  7. POTASSIUM [Concomitant]
     Active Substance: POTASSIUM
     Indication: HYPOKALAEMIA
     Dosage: 1800 MG, QD
     Route: 065
     Dates: start: 20160723
  8. MOVICOL [Concomitant]
     Active Substance: POLYETHYLENE GLYCOL 3350\POTASSIUM CHLORIDE\SODIUM BICARBONATE\SODIUM CHLORIDE
     Indication: CONSTIPATION
     Dosage: UNK UNK, PRN (ON DEMAND)
     Route: 065
  9. L DOPA [Concomitant]
     Active Substance: LEVODOPA
     Indication: RESTLESS LEGS SYNDROME
     Dosage: UNK
     Route: 065
  10. TASIGNA [Suspect]
     Active Substance: NILOTINIB
     Indication: CHRONIC MYELOID LEUKAEMIA
     Dosage: 600 MG, QD (600 MG/D)
     Route: 065
     Dates: start: 20160130, end: 20170416
  11. ALLOPURINOL. [Concomitant]
     Active Substance: ALLOPURINOL
     Dosage: 100 MG, QD
     Route: 065
     Dates: start: 20160801
  12. CHOLESTYRAMINE. [Concomitant]
     Active Substance: CHOLESTYRAMINE
     Indication: HYPERCHOLESTEROLAEMIA
     Dosage: UNK
     Route: 065
     Dates: start: 20160731
  13. DEKRISTOL [Concomitant]
     Active Substance: CHOLECALCIFEROL
     Indication: VITAMIN D DEFICIENCY
     Dosage: 200000 IE, QW (20000IE/ WEEK)
     Route: 065
     Dates: start: 20161115
  14. NEOSTIGMINE [Concomitant]
     Active Substance: NEOSTIGMINE
     Indication: CHOLINERGIC SYNDROME
     Dosage: 3 MG, QD
     Route: 065
     Dates: start: 20161228, end: 20161228
  15. DICLOFENAC [Concomitant]
     Active Substance: DICLOFENAC
     Indication: PAIN
     Dosage: UNK
     Route: 065
  16. BUSCOPAN [Concomitant]
     Active Substance: BUTYLSCOPOLAMINE BROMIDE
     Indication: ABDOMINAL PAIN
     Dosage: UNK UNK, PRN
     Dates: start: 20161231
  17. PERENTEROL [Concomitant]
     Active Substance: SACCHAROMYCES CEREVISIAE
     Indication: DYSBACTERIOSIS
     Dosage: 250 MG, QD
     Dates: start: 20160722
  18. ASPIRIN. [Concomitant]
     Active Substance: ASPIRIN
     Indication: ANTIPLATELET THERAPY
     Dosage: 100 MG, QD
     Route: 065
     Dates: start: 20170402

REACTIONS (2)
  - Salivary gland neoplasm [Recovered/Resolved]
  - Parotid gland enlargement [Unknown]

NARRATIVE: CASE EVENT DATE: 20170109
